FAERS Safety Report 17227707 (Version 1)
Quarter: 2020Q1

REPORT INFORMATION
  Report Type: Spontaneous
  Country: US (occurrence: US)
  Receive Date: 20200103
  Receipt Date: 20200103
  Transmission Date: 20200409
  Serious: No
  Sender: FDA-Public Use
  Company Number: US-ASTRAZENECA-2019SF77233

PATIENT
  Age: 70 Year
  Sex: Female
  Weight: 97.5 kg

DRUGS (3)
  1. AZITHROMYCIN ANHYDROUS. [Concomitant]
     Active Substance: AZITHROMYCIN ANHYDROUS
     Indication: PROPHYLAXIS
  2. SYMBICORT [Suspect]
     Active Substance: BUDESONIDE\FORMOTEROL FUMARATE DIHYDRATE
     Indication: BRONCHIECTASIS
     Dosage: 80/4.5 MCG 2 PUFFS TWICE DAILY
     Route: 055
     Dates: start: 20191129
  3. ALBUTEROL. [Concomitant]
     Active Substance: ALBUTEROL

REACTIONS (4)
  - Infection [Unknown]
  - Oropharyngeal discomfort [Unknown]
  - Bronchitis [Unknown]
  - Product dispensing error [Unknown]

NARRATIVE: CASE EVENT DATE: 2019
